FAERS Safety Report 19394992 (Version 1)
Quarter: 2021Q2

REPORT INFORMATION
  Report Type: Report from Study
  Country: None (occurrence: US)
  Receive Date: 20210609
  Receipt Date: 20210609
  Transmission Date: 20210717
  Serious: Yes (Other)
  Sender: FDA-Public Use
  Company Number: US-ABBVIE-21K-163-3932983-00

PATIENT
  Sex: Female

DRUGS (10)
  1. ORIAHNN [Suspect]
     Active Substance: ELAGOLIX SODIUM\ESTRADIOL\NORETHINDRONE
     Indication: PRODUCT USED FOR UNKNOWN INDICATION
     Dosage: AM
     Route: 048
  2. LISINOPRIL. [Concomitant]
     Active Substance: LISINOPRIL
     Indication: PRODUCT USED FOR UNKNOWN INDICATION
  3. PROVERA [Concomitant]
     Active Substance: MEDROXYPROGESTERONE ACETATE
     Indication: PRODUCT USED FOR UNKNOWN INDICATION
  4. LEXAPRO [Concomitant]
     Active Substance: ESCITALOPRAM OXALATE
     Indication: PRODUCT USED FOR UNKNOWN INDICATION
  5. ORILISSA [Suspect]
     Active Substance: ELAGOLIX SODIUM
     Indication: ABNORMAL UTERINE BLEEDING
  6. ORILISSA [Suspect]
     Active Substance: ELAGOLIX SODIUM
     Indication: ABDOMINAL DISTENSION
  7. ORIAHNN [Suspect]
     Active Substance: ELAGOLIX SODIUM\ESTRADIOL\NORETHINDRONE
     Indication: PRODUCT USED FOR UNKNOWN INDICATION
     Dosage: PM
     Route: 048
  8. ORILISSA [Suspect]
     Active Substance: ELAGOLIX SODIUM
     Indication: HEAVY MENSTRUAL BLEEDING
     Route: 048
     Dates: end: 20210407
  9. ORILISSA [Suspect]
     Active Substance: ELAGOLIX SODIUM
     Indication: MUSCLE SPASMS
  10. ORILISSA [Suspect]
     Active Substance: ELAGOLIX SODIUM
     Indication: PELVIC PAIN

REACTIONS (1)
  - Suicidal ideation [Unknown]
